FAERS Safety Report 11126276 (Version 2)
Quarter: 2018Q4

REPORT INFORMATION
  Report Type: Spontaneous
  Country: CA (occurrence: CA)
  Receive Date: 20150520
  Receipt Date: 20181129
  Transmission Date: 20190204
  Serious: Yes (Hospitalization, Other)
  Sender: FDA-Public Use
  Company Number: CA-009507513-1505CAN006492

PATIENT
  Age: 44 Year
  Sex: Male

DRUGS (14)
  1. LAMISIL [Concomitant]
     Active Substance: TERBINAFINE HYDROCHLORIDE
     Route: 065
  2. IBUPROFEN. [Concomitant]
     Active Substance: IBUPROFEN
     Dosage: 300 MILLIGRAM, Q6H, AS NEEDED (PRN)
     Route: 065
  3. REMERON [Interacting]
     Active Substance: MIRTAZAPINE
     Indication: DEPRESSION
  4. NITROFURANTOIN. [Concomitant]
     Active Substance: NITROFURANTOIN
     Dosage: 100 MILLIGRAM, QD, HS
     Route: 065
  5. CENTRUM (MINERALS (UNSPECIFIED) (+) VITAMINS (UNSPECIFIED)) [Concomitant]
     Dosage: 1 TABLET, QD
     Route: 065
  6. ZOFRAN [Concomitant]
     Active Substance: ONDANSETRON HYDROCHLORIDE
     Dosage: 4-8 MILLIGRAM, Q8H, AS NEEDED (PRN)
     Route: 042
  7. QUETIAPINE FUMARATE. [Interacting]
     Active Substance: QUETIAPINE FUMARATE
     Indication: INSOMNIA
     Dosage: 12.5 MILLIGRAM, 1 EVERY 1 DAY(S), AT BEDTIME
     Route: 048
     Dates: start: 20140909
  8. REMERON [Suspect]
     Active Substance: MIRTAZAPINE
     Indication: INSOMNIA
     Dosage: 30 MILLIGRAM, 1 EVERY 1 DAY(S), AT BEDTIME
     Route: 048
     Dates: end: 20140924
  9. ACETAMINOPHEN. [Concomitant]
     Active Substance: ACETAMINOPHEN
     Dosage: 1 GRAM, Q6H
     Route: 065
  10. ASCORBIC ACID. [Concomitant]
     Active Substance: ASCORBIC ACID
     Route: 065
  11. ENALAPRIL MALEATE. [Concomitant]
     Active Substance: ENALAPRIL MALEATE
     Dosage: 10 MILLIGRAM, HS
     Route: 065
  12. CRANBERRY. [Concomitant]
     Active Substance: CRANBERRY
     Dosage: 270 MILLIGRAM, BID
     Route: 065
  13. LIPITOR [Concomitant]
     Active Substance: ATORVASTATIN CALCIUM
     Dosage: 10 MILLIGRAM, HS
     Route: 065
  14. FRAGMIN [Concomitant]
     Active Substance: DALTEPARIN SODIUM
     Dosage: 5000 UNITS, QD
     Route: 058

REACTIONS (3)
  - Respiratory failure [Recovering/Resolving]
  - Drug interaction [Recovering/Resolving]
  - Bilevel positive airway pressure [Recovering/Resolving]

NARRATIVE: CASE EVENT DATE: 20140924
